FAERS Safety Report 5342817-5 (Version None)
Quarter: 2007Q2

REPORT INFORMATION
  Report Type: 
  Country: None (occurrence: None)
  Receive Date: 20070601
  Receipt Date: 20070511
  Transmission Date: 20071010
  Serious: Yes (Death)
  Sender: FDA-Public Use
  Company Number: BE-MERCK-0705BEL00023

PATIENT
  Age: 65 Year
  Sex: Male
  Weight: 80 kg

DRUGS (7)
  1. AGGRASTAT [Suspect]
     Indication: ANGINA UNSTABLE
     Route: 041
  2. ASPIRIN [Concomitant]
     Indication: PROPHYLAXIS
     Route: 048
  3. CLOPIDOGREL BISULFATE [Concomitant]
     Route: 048
  4. HEPARIN [Concomitant]
     Route: 051
  5. [THERAPY UNSPECIFIED] [Concomitant]
     Route: 048
     Dates: end: 20070301
  6. HEPARIN LOW MOLECULAR WEIGHT [Concomitant]
     Route: 051
     Dates: end: 20070301
  7. INSULIN [Concomitant]
     Indication: DIABETES MELLITUS NON-INSULIN-DEPENDENT
     Route: 058
     Dates: start: 20070101

REACTIONS (1)
  - DEATH [None]
